FAERS Safety Report 18218812 (Version 2)
Quarter: 2020Q3

REPORT INFORMATION
  Report Type: Spontaneous
  Country: US (occurrence: US)
  Receive Date: 20200901
  Receipt Date: 20200920
  Transmission Date: 20201103
  Serious: Yes (Hospitalization)
  Sender: FDA-Public Use
  Company Number: US-TEVA-2020-US-1821450

PATIENT
  Age: 34 Year
  Sex: Female

DRUGS (20)
  1. OLANZAPINE. [Suspect]
     Active Substance: OLANZAPINE
     Indication: BIPOLAR I DISORDER
     Dosage: DOSAGE AT INITIATION NOT STATED
     Route: 065
  2. MENOPUR [Suspect]
     Active Substance: FOLLITROPIN\LUTEINIZING HORMONE
     Indication: OOCYTE HARVEST
  3. MENOPUR [Suspect]
     Active Substance: FOLLITROPIN\LUTEINIZING HORMONE
     Indication: OVULATION INDUCTION
     Dosage: FIXED?DOSE COMBINATION OF RECOMBINANT FOLLICLE STIMULATING HORMONE/LUTEINIZING HORMONE CONTAINING...
     Route: 065
  4. LORAZEPAM. [Suspect]
     Active Substance: LORAZEPAM
     Indication: AGITATION
  5. DIPHENHYDRAMINE. [Suspect]
     Active Substance: DIPHENHYDRAMINE
     Indication: AGITATION
  6. QUETIAPINE. [Concomitant]
     Active Substance: QUETIAPINE
     Indication: INSOMNIA
     Dosage: OCCASIONALLY AT BEDTIME
     Route: 065
  7. GONAL?F [Suspect]
     Active Substance: FOLLITROPIN
     Indication: OOCYTE HARVEST
  8. HUMAN CHORIONIC GONADOTROPIN [Suspect]
     Active Substance: GONADOTROPHIN, CHORIONIC
     Indication: OOCYTE HARVEST
  9. VALPROIC ACID. [Suspect]
     Active Substance: VALPROIC ACID
     Indication: BIPOLAR I DISORDER
     Dosage: WITHIN THERAPEUTIC LEVEL
     Route: 065
  10. CLONAZEPAM. [Suspect]
     Active Substance: CLONAZEPAM
     Indication: MANIA
     Dosage: 3 MILLIGRAM DAILY; THREE TIMES A DAY
     Route: 065
  11. CETROTIDE [Suspect]
     Active Substance: CETRORELIX ACETATE
     Indication: OVULATION INDUCTION
     Dosage: .25 MILLIGRAM DAILY;
     Route: 065
  12. CETROTIDE [Suspect]
     Active Substance: CETRORELIX ACETATE
     Indication: OOCYTE HARVEST
  13. HUMAN CHORIONIC GONADOTROPIN [Suspect]
     Active Substance: GONADOTROPHIN, CHORIONIC
     Indication: OVULATION INDUCTION
     Dosage: 10,000?UNITS; SINGLE DOSE
     Route: 065
  14. GONAL?F [Suspect]
     Active Substance: FOLLITROPIN
     Indication: OVULATION INDUCTION
     Dosage: 75?UNIT
     Route: 065
  15. CLONAZEPAM. [Suspect]
     Active Substance: CLONAZEPAM
     Indication: BIPOLAR I DISORDER
     Dosage: 1 MILLIGRAM DAILY; AS NEEDED
     Route: 065
  16. CHLORPROMAZINE. [Suspect]
     Active Substance: CHLORPROMAZINE
     Indication: MANIA
     Route: 065
  17. DIPHENHYDRAMINE. [Suspect]
     Active Substance: DIPHENHYDRAMINE
     Indication: MANIA
     Route: 065
  18. OLANZAPINE. [Suspect]
     Active Substance: OLANZAPINE
     Indication: MANIA
     Route: 065
  19. VALPROIC ACID. [Suspect]
     Active Substance: VALPROIC ACID
     Indication: MANIA
  20. LORAZEPAM. [Suspect]
     Active Substance: LORAZEPAM
     Indication: MANIA
     Route: 065

REACTIONS (5)
  - Mania [Recovering/Resolving]
  - Constipation [Unknown]
  - Hypomania [Recovering/Resolving]
  - Drug ineffective [Unknown]
  - Transaminases increased [Unknown]
